FAERS Safety Report 9036193 (Version 1)
Quarter: 2013Q1

REPORT INFORMATION
  Report Type: Spontaneous
  Country: US (occurrence: None)
  Receive Date: 20130117
  Receipt Date: 20130117
  Transmission Date: 20140127
  Serious: Yes (Hospitalization)
  Sender: FDA-Public Use
  Company Number: None

PATIENT
  Age: 48 Year
  Sex: Female
  Weight: 165 kg

DRUGS (19)
  1. PRIVIGEN [Suspect]
     Indication: GUILLAIN-BARRE SYNDROME
     Dosage: IVIG (PRIVIGEN) 30 QD X2 IV
     Route: 042
     Dates: start: 20121116, end: 20121117
  2. PRIVIGEN [Suspect]
     Indication: GUILLAIN-BARRE SYNDROME
     Dosage: IVIG (PRIVIGEN) 60 G QD X6 IV
     Route: 042
     Dates: start: 20121118, end: 20121124
  3. BUPROPRION [Concomitant]
  4. SOMA [Concomitant]
  5. CEFEPIME [Concomitant]
  6. CYCLOBENZAPRINE [Concomitant]
  7. DEXAMETHASONE [Concomitant]
  8. GADOBENATE DIMEGLUMINE [Concomitant]
  9. HEPARIN FLUSHES [Concomitant]
  10. INSULIN ASPART [Concomitant]
  11. LIDODERM PATCH [Concomitant]
  12. LORAZEPAM [Concomitant]
  13. NYSTATIN TOPICAL POWDER [Concomitant]
  14. MIRALAX [Concomitant]
  15. PREGABALIN [Concomitant]
  16. SENNA [Concomitant]
  17. SIMETHICONE [Concomitant]
  18. VANCOMYCIN [Concomitant]
  19. ZONISAMIDE [Concomitant]

REACTIONS (2)
  - Isoimmune haemolytic disease [None]
  - Haemoglobin decreased [None]
